FAERS Safety Report 10986042 (Version 1)
Quarter: 2015Q1

REPORT INFORMATION
  Report Type: Spontaneous
  Country: US (occurrence: None)
  Receive Date: 20150313
  Receipt Date: 20150313
  Transmission Date: 20150721
  Serious: Yes (Other)
  Sender: FDA-Public Use
  Company Number: 1487143

PATIENT
  Age: 30 Year
  Sex: Female

DRUGS (5)
  1. XOLAIR [Suspect]
     Active Substance: OMALIZUMAB
     Indication: ASTHMA
     Dates: start: 2008
  2. SINGULAIR (MONTELUKAST SODIUM) [Concomitant]
  3. PROAIR (UNITED STATES) (SALBUTAMOL SULFATE) [Concomitant]
  4. DULERA (FORMOTEROL FUMARATE, MOMETASONE FUROATE) [Concomitant]
  5. SPIRIVA (TIOTROPIUM BROMIDE) [Concomitant]

REACTIONS (1)
  - Alopecia [None]
